FAERS Safety Report 15090143 (Version 1)
Quarter: 2018Q2

REPORT INFORMATION
  Report Type: Spontaneous
  Country: US (occurrence: US)
  Receive Date: 20180629
  Receipt Date: 20180629
  Transmission Date: 20180711
  Serious: Yes (Other)
  Sender: FDA-Public Use
  Company Number: US-BAYER-2018-117238

PATIENT
  Sex: Male

DRUGS (1)
  1. NEXAVAR [Suspect]
     Active Substance: SORAFENIB
     Indication: DESMOID TUMOUR
     Dosage: DAILY DOSE 600 MG (200 MG IN MORNING AND 400 MG IN THE EVENING)
     Route: 048
     Dates: start: 2018

REACTIONS (6)
  - Erectile dysfunction [None]
  - Testicular pain [Not Recovered/Not Resolved]
  - Fatigue [None]
  - Blood testosterone decreased [None]
  - Product use in unapproved indication [None]
  - Off label use [None]

NARRATIVE: CASE EVENT DATE: 2018
